FAERS Safety Report 25266514 (Version 6)
Quarter: 2025Q2

REPORT INFORMATION
  Report Type: Spontaneous
  Country: US (occurrence: US)
  Receive Date: 20250505
  Receipt Date: 20250512
  Transmission Date: 20250717
  Serious: No
  Sender: SANDOZ
  Company Number: US-SANDOZ-SDZ2025US027742

PATIENT
  Age: 44 Year
  Sex: Female

DRUGS (1)
  1. ESTRADIOL [Suspect]
     Active Substance: ESTRADIOL
     Indication: Product used for unknown indication
     Dosage: 0.05MG/1D 4TTSM, Q2W
     Route: 062

REACTIONS (6)
  - Acne [Unknown]
  - Rash [Unknown]
  - Application site rash [Unknown]
  - Application site pruritus [Unknown]
  - Incorrect dose administered by device [Unknown]
  - Product adhesion issue [Unknown]
